FAERS Safety Report 23326615 (Version 1)
Quarter: 2023Q4

REPORT INFORMATION
  Report Type: Spontaneous
  Country: US (occurrence: None)
  Receive Date: 20231220
  Receipt Date: 20231220
  Transmission Date: 20240110
  Serious: Yes (Other)
  Sender: FDA-Public Use
  Company Number: None

PATIENT
  Age: 46 Year
  Sex: Female
  Weight: 74.25 kg

DRUGS (7)
  1. EMGALITY [Suspect]
     Active Substance: GALCANEZUMAB-GNLM
     Indication: Migraine
  2. EMGALITY [Suspect]
     Active Substance: GALCANEZUMAB-GNLM
     Indication: Cluster headache
  3. AMITRIPTYLINE [Concomitant]
     Active Substance: AMITRIPTYLINE
  4. RITALIN [Concomitant]
     Active Substance: METHYLPHENIDATE HYDROCHLORIDE
  5. LYRICA [Concomitant]
     Active Substance: PREGABALIN
  6. KLONOPIN [Concomitant]
     Active Substance: CLONAZEPAM
  7. VIMPAT [Concomitant]
     Active Substance: LACOSAMIDE

REACTIONS (7)
  - Migraine [None]
  - Cluster headache [None]
  - Alopecia [None]
  - Alopecia [None]
  - Arthralgia [None]
  - Contusion [None]
  - Constipation [None]

NARRATIVE: CASE EVENT DATE: 20231015
